FAERS Safety Report 11148578 (Version 1)
Quarter: 2015Q2

REPORT INFORMATION
  Report Type: Spontaneous
  Country: US (occurrence: None)
  Receive Date: 20150527
  Receipt Date: 20150527
  Transmission Date: 20150821
  Serious: Yes (Hospitalization)
  Sender: FDA-Public Use
  Company Number: 2015PRN00027

PATIENT
  Age: 85 Year
  Sex: Male

DRUGS (2)
  1. DONEPEZIL (DONEPEZIL) UNKNOWN [Suspect]
     Active Substance: DONEPEZIL
     Indication: DEMENTIA ALZHEIMER^S TYPE
  2. ASPIRIN (ACETYLSALICYLIC ACID) UNKNOWN 325MG [Suspect]
     Active Substance: ASPIRIN

REACTIONS (6)
  - Shock haemorrhagic [None]
  - Duodenal ulcer haemorrhage [None]
  - Duodenal ulcer [None]
  - Oesophageal ulcer [None]
  - Gastric ulcer [None]
  - Gastrointestinal haemorrhage [None]
